FAERS Safety Report 24544164 (Version 1)
Quarter: 2024Q4

REPORT INFORMATION
  Report Type: Spontaneous
  Country: US (occurrence: US)
  Receive Date: 20241024
  Receipt Date: 20241024
  Transmission Date: 20250115
  Serious: Yes (Other)
  Sender: MYLAN
  Company Number: US-MYLANLABS-2024M1095128

PATIENT
  Age: 1 Year
  Sex: Male

DRUGS (5)
  1. PENICILLAMINE [Suspect]
     Active Substance: PENICILLAMINE
     Indication: Metal poisoning
     Dosage: UNK
     Route: 048
  2. DIMERCAPROL [Suspect]
     Active Substance: DIMERCAPROL
     Indication: Metal poisoning
     Dosage: UNK
     Route: 065
  3. DIMERCAPROL [Suspect]
     Active Substance: DIMERCAPROL
     Indication: Chelation therapy
  4. 2,3-DIMERCAPTOSUCCINIC ACID [Suspect]
     Active Substance: 2,3-DIMERCAPTOSUCCINIC ACID
     Indication: Metal poisoning
     Dosage: UNK
     Route: 048
  5. 2,3-DIMERCAPTOSUCCINIC ACID [Suspect]
     Active Substance: 2,3-DIMERCAPTOSUCCINIC ACID
     Indication: Chelation therapy

REACTIONS (5)
  - Nausea [Recovering/Resolving]
  - Vomiting [Recovering/Resolving]
  - Selective eating disorder [Recovering/Resolving]
  - Feeding disorder [Recovering/Resolving]
  - Off label use [Unknown]
